FAERS Safety Report 9062021 (Version 1)
Quarter: 2013Q1

REPORT INFORMATION
  Report Type: Spontaneous
  Country: US (occurrence: US)
  Receive Date: 20130127
  Receipt Date: 20130127
  Transmission Date: 20140127
  Serious: No
  Sender: FDA-Public Use
  Company Number: US-ASTRAZENECA-2013SE03878

PATIENT
  Age: 82 Year
  Sex: Female
  Weight: 53.5 kg

DRUGS (11)
  1. TOPROL XL [Suspect]
     Indication: BLOOD PRESSURE ABNORMAL
     Route: 048
     Dates: start: 20120311
  2. BRILINTA [Suspect]
     Indication: ARTERIAL OCCLUSIVE DISEASE
     Route: 048
     Dates: start: 20120311
  3. BRILINTA [Suspect]
     Indication: STENT PLACEMENT
     Route: 048
     Dates: start: 20120311
  4. ASPIRIN [Suspect]
     Route: 048
  5. ZETIA [Suspect]
     Route: 065
     Dates: start: 201203
  6. PHENERGAN [Concomitant]
     Indication: NAUSEA
  7. ACIDCOL [Concomitant]
  8. LOMOTIL [Concomitant]
  9. PREVACID [Concomitant]
  10. PRINOVIL [Concomitant]
     Indication: BLOOD PRESSURE ABNORMAL
  11. HYDROCHLOROTHIAZIDE [Concomitant]

REACTIONS (5)
  - Anaemia [Unknown]
  - Epistaxis [Unknown]
  - Increased tendency to bruise [Unknown]
  - Haemorrhagic diathesis [Unknown]
  - Dyspnoea [Recovered/Resolved]
